FAERS Safety Report 21044943 (Version 12)
Quarter: 2025Q1

REPORT INFORMATION
  Report Type: Report from Study
  Country: US (occurrence: US)
  Receive Date: 20220705
  Receipt Date: 20250114
  Transmission Date: 20250409
  Serious: Yes (Other)
  Sender: TAKEDA
  Company Number: US-TAKEDA-2021TUS047822

PATIENT
  Sex: Female
  Weight: 84 kg

DRUGS (25)
  1. HUMAN IMMUNOGLOBULIN G [Suspect]
     Active Substance: HUMAN IMMUNOGLOBULIN G
     Indication: Immunodeficiency common variable
     Dosage: 10 GRAM, 1/WEEK
     Dates: start: 20131011
  2. HUMAN IMMUNOGLOBULIN G [Suspect]
     Active Substance: HUMAN IMMUNOGLOBULIN G
     Dosage: 10 GRAM, 1/WEEK
  3. DIPHENHYDRAMINE [Concomitant]
     Active Substance: DIPHENHYDRAMINE
  4. VITAMIN D3 [Concomitant]
     Active Substance: CHOLECALCIFEROL
  5. SUMATRIPTAN SUCCINATE [Concomitant]
     Active Substance: SUMATRIPTAN SUCCINATE
  6. EPINEPHRINE [Concomitant]
     Active Substance: EPINEPHRINE
  7. NAPROXEN [Concomitant]
     Active Substance: NAPROXEN
  8. PROLIA [Concomitant]
     Active Substance: DENOSUMAB
  9. TRAZODONE HCL [Concomitant]
     Active Substance: TRAZODONE HYDROCHLORIDE
  10. TRAMADOL HCL [Concomitant]
     Active Substance: TRAMADOL HYDROCHLORIDE
  11. VITAMIN C [Concomitant]
     Active Substance: ASCORBIC ACID
  12. PREMARIN [Concomitant]
     Active Substance: ESTROGENS, CONJUGATED
  13. BIOTIN [Concomitant]
     Active Substance: BIOTIN
  14. LEVOTHYROXINE [Concomitant]
     Active Substance: LEVOTHYROXINE
  15. LETROZOLE [Concomitant]
     Active Substance: LETROZOLE
  16. MAGNESIUM [Concomitant]
     Active Substance: MAGNESIUM
  17. IMITREX [Concomitant]
     Active Substance: SUMATRIPTAN SUCCINATE
  18. PANTOPRAZOLE SODIUM [Concomitant]
     Active Substance: PANTOPRAZOLE SODIUM
  19. TYLENOL [Concomitant]
     Active Substance: ACETAMINOPHEN
  20. ISOSORBIDE MONONITRATE [Concomitant]
     Active Substance: ISOSORBIDE MONONITRATE
  21. EPIPEN [Concomitant]
     Active Substance: EPINEPHRINE
  22. LIDOCAINE [Concomitant]
     Active Substance: LIDOCAINE
  23. CYANOCOBALAMIN\DEXPANTHENOL\NIACINAMIDE\PYRIDOXINE HYDROCHLORIDE\RIBOF [Concomitant]
     Active Substance: CYANOCOBALAMIN\DEXPANTHENOL\NIACINAMIDE\PYRIDOXINE HYDROCHLORIDE\RIBOFLAVIN 5^-PHOSPHATE SODIUM\THIA
  24. DIPHENHYDRAMINE HYDROCHLORIDE [Concomitant]
     Active Substance: DIPHENHYDRAMINE HYDROCHLORIDE
  25. VITAMIN D NOS [Concomitant]
     Active Substance: CHOLECALCIFEROL\ERGOCALCIFEROL

REACTIONS (16)
  - Neoplasm malignant [Recovered/Resolved]
  - Kidney infection [Unknown]
  - Seasonal allergy [Unknown]
  - Increased appetite [Unknown]
  - COVID-19 [Unknown]
  - Arthritis [Unknown]
  - Eye allergy [Unknown]
  - Food poisoning [Unknown]
  - Urinary tract infection [Unknown]
  - Cystitis [Unknown]
  - Fall [Unknown]
  - Sneezing [Unknown]
  - Impaired healing [Recovering/Resolving]
  - Asthma [Unknown]
  - Rhinorrhoea [Unknown]
  - Dizziness [Unknown]
